FAERS Safety Report 7411793-3 (Version None)
Quarter: 2011Q2

REPORT INFORMATION
  Report Type: 
  Country: None (occurrence: None)
  Receive Date: 20110413
  Receipt Date: 20110120
  Transmission Date: 20111010
  Serious: No
  Sender: FDA-Public Use
  Company Number: US-BRISTOL-MYERS SQUIBB COMPANY-15501141

PATIENT
  Sex: Male

DRUGS (1)
  1. ERBITUX [Suspect]
     Dosage: INTERRUPTED FOR 3 WK,RESTRATED WITH REDUCED DOSE 125 MG/M2 WEEKLY
     Route: 042

REACTIONS (1)
  - RASH [None]
